FAERS Safety Report 8800040 (Version 2)
Quarter: 2012Q4

REPORT INFORMATION
  Report Type: 
  Country: US (occurrence: US)
  Receive Date: 20120921
  Receipt Date: 20120927
  Transmission Date: 20130627
  Serious: Yes (Hospitalization)
  Sender: FDA-Public Use
  Company Number: US-009507513-1209USA007477

PATIENT
  Sex: Female

DRUGS (2)
  1. SINGULAIR [Suspect]
     Indication: ASTHMA
     Dosage: 10 mg, qd
     Route: 048
     Dates: start: 2005, end: 20120906
  2. SINGULAIR [Suspect]
     Indication: HYPERSENSITIVITY

REACTIONS (2)
  - Bipolar disorder [Recovering/Resolving]
  - Overdose [Unknown]
